FAERS Safety Report 14698833 (Version 1)
Quarter: 2018Q1

REPORT INFORMATION
  Report Type: Report from Study
  Country: US (occurrence: US)
  Receive Date: 20180330
  Receipt Date: 20180330
  Transmission Date: 20180509
  Serious: Yes (Death)
  Sender: FDA-Public Use
  Company Number: US-CIPLA LTD.-2018US13913

PATIENT

DRUGS (3)
  1. CARBOPLATIN. [Suspect]
     Active Substance: CARBOPLATIN
     Indication: METASTATIC NEOPLASM
     Dosage: UNK (AUC 6) ON DAY 1 OF EACH 21-DAY CYCLE
     Route: 042
  2. GEMCITABINE [Suspect]
     Active Substance: GEMCITABINE\GEMCITABINE HYDROCHLORIDE
     Indication: METASTATIC NEOPLASM
     Dosage: UNK
     Route: 042
  3. VELIPARIB [Suspect]
     Active Substance: VELIPARIB
     Indication: METASTATIC NEOPLASM
     Dosage: UNK, BID ON DAY 1
     Route: 048

REACTIONS (1)
  - Cholangiocarcinoma [Fatal]
